FAERS Safety Report 17276513 (Version 1)
Quarter: 2020Q1

REPORT INFORMATION
  Report Type: Spontaneous
  Country: US (occurrence: US)
  Receive Date: 20200116
  Receipt Date: 20200116
  Transmission Date: 20200409
  Serious: Yes (Hospitalization)
  Sender: FDA-Public Use
  Company Number: US-MYLANLABS-2020M1004456

PATIENT
  Age: 37 Year
  Sex: Male

DRUGS (3)
  1. VENLAFAXINE [Suspect]
     Active Substance: VENLAFAXINE HYDROCHLORIDE
     Indication: ANXIETY
  2. VENLAFAXINE [Suspect]
     Active Substance: VENLAFAXINE HYDROCHLORIDE
     Indication: DEPRESSION
     Dosage: 150 MILLIGRAM, BID
     Route: 065
  3. BUSPIRONE [Concomitant]
     Active Substance: BUSPIRONE HYDROCHLORIDE
     Dosage: 15 MILLIGRAM
     Route: 065

REACTIONS (8)
  - Cardiomegaly [Recovering/Resolving]
  - Cardiac failure acute [Recovering/Resolving]
  - Toxicity to various agents [Recovering/Resolving]
  - Cardiomyopathy [Recovering/Resolving]
  - Mitral valve incompetence [Recovering/Resolving]
  - Pleural effusion [Recovered/Resolved]
  - Pneumonitis [Recovered/Resolved]
  - Tricuspid valve incompetence [Recovering/Resolving]
